FAERS Safety Report 25058291 (Version 1)
Quarter: 2025Q1

REPORT INFORMATION
  Report Type: Spontaneous
  Country: US (occurrence: None)
  Receive Date: 20250309
  Receipt Date: 20250309
  Transmission Date: 20250408
  Serious: Yes (Disabling, Other)
  Sender: FDA-CTU
  Company Number: None

PATIENT
  Age: 67 Year
  Sex: Female
  Weight: 60.3 kg

DRUGS (7)
  1. PRULIFLOXACIN [Suspect]
     Active Substance: PRULIFLOXACIN
     Indication: Urinary tract infection
     Route: 048
     Dates: start: 20240930
  2. Cane [Concomitant]
  3. MINERALS\VITAMINS [Concomitant]
     Active Substance: MINERALS\VITAMINS
  4. COENZYME Q10 [Concomitant]
     Active Substance: DIETARY SUPPLEMENT\UBIDECARENONE
  5. FISH OIL [Concomitant]
     Active Substance: FISH OIL
  6. CALCIUM [Concomitant]
     Active Substance: CALCIUM
  7. MAGNESIUM GLYCINATE [Concomitant]
     Active Substance: MAGNESIUM GLYCINATE

REACTIONS (14)
  - Tendon pain [None]
  - Muscular weakness [None]
  - Exercise tolerance increased [None]
  - Diplopia [None]
  - Neuropathy peripheral [None]
  - Alopecia [None]
  - Deafness [None]
  - Skin atrophy [None]
  - Anxiety [None]
  - Depression [None]
  - Confusional state [None]
  - Weight decreased [None]
  - Tendon disorder [None]
  - Swelling [None]

NARRATIVE: CASE EVENT DATE: 20240930
